FAERS Safety Report 5337871-0 (Version None)
Quarter: 2007Q2

REPORT INFORMATION
  Report Type: 
  Country: None (occurrence: None)
  Receive Date: 20070308
  Receipt Date: 20061212
  Transmission Date: 20071010
  Serious: No
  Sender: FDA-Public Use
  Company Number: 2006-BP-13996BP

PATIENT
  Age: 67 Year
  Sex: Male

DRUGS (4)
  1. SPIRIVA [Suspect]
     Indication: CHRONIC OBSTRUCTIVE PULMONARY DISEASE
     Dosage: 18 MCG (18 MCG, 1 IN 1 D); IH
     Route: 055
     Dates: start: 20060501
  2. ADVAIR DISKUS (SERETIDE /01420901/) [Concomitant]
  3. FISH OIL (FISH OIL) [Concomitant]
  4. ISOSORBIDE MONO (ISOSORBIDE MONITRATE) [Concomitant]

REACTIONS (3)
  - EYE PAIN [None]
  - MACULAR DEGENERATION [None]
  - RETINAL DETACHMENT [None]
